FAERS Safety Report 7620427-4 (Version None)
Quarter: 2011Q3

REPORT INFORMATION
  Report Type: 
  Country: None (occurrence: None)
  Receive Date: 20110719
  Receipt Date: 20110708
  Transmission Date: 20111222
  Serious: Yes (Hospitalization)
  Sender: FDA-Public Use
  Company Number: US-JNJFOC-20110704987

PATIENT
  Sex: Female

DRUGS (9)
  1. TOPAMAX [Suspect]
     Route: 048
     Dates: start: 20110512, end: 20110518
  2. TOPAMAX [Suspect]
     Route: 048
     Dates: start: 20110505, end: 20110511
  3. HPN-100 [Suspect]
     Indication: BLOOD UREA ABNORMAL
     Route: 048
     Dates: start: 20100526
  4. HYDROCODONE [Concomitant]
     Route: 065
     Dates: start: 20110218, end: 20110523
  5. ESTROSTEP [Concomitant]
     Route: 065
  6. LEXAPRO [Concomitant]
     Route: 065
  7. PREDNISONE [Suspect]
     Indication: RASH
     Dosage: 40 MG OR 50 MG ONCE A DAY
     Route: 048
     Dates: start: 20110515, end: 20110519
  8. ADDERALL 10 [Concomitant]
     Route: 065
     Dates: start: 20110316
  9. TOPAMAX [Suspect]
     Indication: HEADACHE
     Route: 048
     Dates: start: 20110519, end: 20110525

REACTIONS (2)
  - HYPERAMMONAEMIA [None]
  - RASH [None]
